FAERS Safety Report 7825655-0 (Version None)
Quarter: 2011Q4

REPORT INFORMATION
  Report Type: 
  Country: None (occurrence: None)
  Receive Date: 20111019
  Receipt Date: 20111018
  Transmission Date: 20120403
  Serious: Yes (Death, Hospitalization, Other)
  Sender: FDA-Public Use
  Company Number: JP-PFIZER INC-2011087794

PATIENT
  Age: 82 Year
  Sex: Male
  Weight: 55.1 kg

DRUGS (6)
  1. ARICEPT [Suspect]
     Indication: DEMENTIA ALZHEIMER'S TYPE
     Dosage: 5 MG, UNK
     Route: 048
     Dates: start: 20050101, end: 20090303
  2. ARICEPT [Suspect]
     Dosage: 10 MG, 1X/DAY
     Route: 048
     Dates: start: 20090304, end: 20100629
  3. LIVALO [Suspect]
     Dosage: 2 MG, 1X/DAY
     Route: 048
  4. COLONEL [Suspect]
     Indication: DIARRHOEA
     Dosage: 1.8 MG, 1X/DAY
     Dates: start: 20091017
  5. ZOLOFT [Suspect]
     Dosage: 25 MG, 1X/DAY
     Route: 048
     Dates: start: 20091215
  6. CEREKINON [Concomitant]
     Dosage: UNK
     Dates: end: 20091018

REACTIONS (6)
  - PNEUMONIA [None]
  - DIARRHOEA [None]
  - DEHYDRATION [None]
  - HYPOPROTEINAEMIA [None]
  - SUBDURAL HAEMATOMA [None]
  - RENAL IMPAIRMENT [None]
